FAERS Safety Report 8336918-7 (Version None)
Quarter: 2012Q2

REPORT INFORMATION
  Report Type: 
  Country: None (occurrence: None)
  Receive Date: 20120501
  Receipt Date: 20120418
  Transmission Date: 20120825
  Serious: Yes (Other)
  Sender: FDA-Public Use
  Company Number: JP-2012-15040

PATIENT
  Age: 58 Year
  Sex: Male
  Weight: 88 kg

DRUGS (6)
  1. HANP (CARPERITIDE) [Concomitant]
  2. MICARDIS [Concomitant]
  3. ATELEC (CILNIDIPINE) [Concomitant]
  4. SAMSCA [Suspect]
     Indication: FLUID RETENTION
     Dosage: 15 MG MILLIGRAM(S), QAM, ORAL
     Route: 048
     Dates: start: 20120329
  5. LASIX [Concomitant]
  6. CORETEC (OLPRINONE HYDROCHLORIDE) [Concomitant]

REACTIONS (3)
  - BLOOD CREATININE INCREASED [None]
  - BLOOD UREA INCREASED [None]
  - THIRST [None]
